FAERS Safety Report 9423022 (Version 4)
Quarter: 2013Q4

REPORT INFORMATION
  Report Type: Spontaneous
  Country: FR (occurrence: FR)
  Receive Date: 20130715
  Receipt Date: 20131022
  Transmission Date: 20140711
  Serious: Yes (Hospitalization, Other)
  Sender: FDA-Public Use
  Company Number: 2013036864

PATIENT
  Age: 25 Month
  Sex: Female

DRUGS (1)
  1. PRIVIGEN [Suspect]
     Indication: KAWASAKI^S DISEASE
     Dosage: 20 G, 2 G/KG/D, INTRAVENOUS (NOT OTHERWISE SPECIFIED)?
     Route: 042
     Dates: start: 20130626, end: 20130626

REACTIONS (4)
  - Pyrexia [None]
  - Tachycardia [None]
  - Chills [None]
  - Autoimmune haemolytic anaemia [None]
